FAERS Safety Report 10186161 (Version 6)
Quarter: 2016Q1

REPORT INFORMATION
  Report Type: Spontaneous
  Country: US (occurrence: US)
  Receive Date: 20140521
  Receipt Date: 20160209
  Transmission Date: 20160525
  Serious: Yes (Hospitalization, Other)
  Sender: FDA-Public Use
  Company Number: US-GLAXOSMITHKLINE-A1011342A

PATIENT
  Sex: Female

DRUGS (5)
  1. ADVAIR HFA [Suspect]
     Active Substance: FLUTICASONE PROPIONATE\SALMETEROL XINAFOATE
     Indication: NASOPHARYNGITIS
     Dosage: 100/50MCG START DATE OF 27SEP2011250/50MCG START DATE OF 25SEP2012500/50
     Route: 055
     Dates: start: 20130218
  2. ADVAIR HFA [Suspect]
     Active Substance: FLUTICASONE PROPIONATE\SALMETEROL XINAFOATE
     Indication: INFLUENZA
     Dosage: 100 MCG
  3. ADVAIR HFA [Suspect]
     Active Substance: FLUTICASONE PROPIONATE\SALMETEROL XINAFOATE
     Indication: PULMONARY CONGESTION
     Dosage: 250/50 MCG
  4. ADVAIR HFA [Suspect]
     Active Substance: FLUTICASONE PROPIONATE\SALMETEROL XINAFOATE
     Indication: DYSPNOEA
  5. SEREVENT DISKUS [Concomitant]
     Active Substance: SALMETEROL XINAFOATE
     Dates: start: 20110720

REACTIONS (7)
  - Off label use [Unknown]
  - Respiratory tract infection [Unknown]
  - Adverse event [Unknown]
  - Dyspnoea [Unknown]
  - Influenza [Unknown]
  - Pulmonary congestion [Unknown]
  - Nasopharyngitis [Unknown]
